FAERS Safety Report 8376678-7 (Version None)
Quarter: 2012Q1

REPORT INFORMATION
  Report Type: 
  Country: None (occurrence: None)
  Receive Date: 20120323
  Receipt Date: 20110502
  Transmission Date: 20120608
  Serious: Yes (Other)
  Sender: FDA-Public Use
  Company Number: 163-21880-10120392

PATIENT
  Age: 88 Year
  Sex: Female

DRUGS (8)
  1. FENTANYL [Concomitant]
  2. REVLIMID [Suspect]
     Indication: MULTIPLE MYELOMA
     Dosage: 10 MG, DAILY X 21 DAYS, PO, 5 MG, DAILY X 21 DAYS, PO
     Route: 048
     Dates: start: 20101021, end: 20110101
  3. REVLIMID [Suspect]
     Indication: MULTIPLE MYELOMA
     Dosage: 10 MG, DAILY X 21 DAYS, PO, 5 MG, DAILY X 21 DAYS, PO
     Route: 048
     Dates: start: 20110101, end: 20110208
  4. ZOMETA [Concomitant]
  5. MOM (MAGNESIUM HYDROXIDE) [Concomitant]
  6. DECADRON [Concomitant]
  7. ARANESP [Concomitant]
  8. OXYCODONE HCL [Concomitant]

REACTIONS (1)
  - RENAL FAILURE CHRONIC [None]
